FAERS Safety Report 19606734 (Version 2)
Quarter: 2021Q4

REPORT INFORMATION
  Report Type: Spontaneous
  Country: US (occurrence: US)
  Receive Date: 20210725
  Receipt Date: 20211015
  Transmission Date: 20220303
  Serious: Yes (Death)
  Sender: FDA-Public Use
  Company Number: US-ROCHE-2875804

PATIENT
  Age: 70 Year
  Sex: Male

DRUGS (1)
  1. AVASTIN [Suspect]
     Active Substance: BEVACIZUMAB
     Indication: Product used for unknown indication
     Dosage: FORM STRENGTH: 400MG/16ML
     Route: 042
     Dates: start: 202105

REACTIONS (1)
  - Death [Fatal]

NARRATIVE: CASE EVENT DATE: 20210715
